FAERS Safety Report 7747354-6 (Version None)
Quarter: 2011Q3

REPORT INFORMATION
  Report Type: 
  Country: None (occurrence: None)
  Receive Date: 20110913
  Receipt Date: 20110907
  Transmission Date: 20111222
  Serious: Yes (Death, Hospitalization)
  Sender: FDA-Public Use
  Company Number: US-GLAXOSMITHKLINE-A0882979A

PATIENT
  Age: 77 Year
  Sex: Female
  Weight: 97.7 kg

DRUGS (5)
  1. SINGULAIR [Concomitant]
  2. NEXIUM [Concomitant]
  3. AVANDIA [Suspect]
     Indication: DIABETES MELLITUS
     Dosage: 4MG PER DAY
     Route: 048
     Dates: end: 20100501
  4. NORVASC [Concomitant]
  5. GLIPIZIDE [Concomitant]

REACTIONS (5)
  - CORONARY ARTERY DISEASE [None]
  - FRACTURE [None]
  - CARDIO-RESPIRATORY ARREST [None]
  - ACUTE MYOCARDIAL INFARCTION [None]
  - CARDIAC FAILURE CONGESTIVE [None]
